FAERS Safety Report 12994509 (Version 1)
Quarter: 2016Q4

REPORT INFORMATION
  Report Type: Report from Study
  Country: TW (occurrence: TW)
  Receive Date: 20161202
  Receipt Date: 20161202
  Transmission Date: 20170207
  Serious: Yes (Other)
  Sender: FDA-Public Use
  Company Number: TW-PFIZER INC-2016557171

PATIENT

DRUGS (4)
  1. LEUCOVORIN. [Suspect]
     Active Substance: LEUCOVORIN
     Indication: NEOPLASM MALIGNANT
     Dosage: 200 MG/M2, CYCLIC (24 H IV INFUSION ON DAYS 1 AND 8 EVERY 3 WEEKS)
     Route: 041
  2. IRINOTECAN LIPOSOME INJECTION [Suspect]
     Active Substance: IRINOTECAN HYDROCHLORIDE
     Indication: NEOPLASM
     Dosage: 100 MG/M2, CYCLIC OVER 90 MIN
     Route: 041
  3. DEXAMETHASONE. [Concomitant]
     Active Substance: DEXAMETHASONE
     Indication: PREMEDICATION
     Dosage: UNK
  4. FLUOROURACIL. [Suspect]
     Active Substance: FLUOROURACIL
     Indication: NEOPLASM
     Dosage: 2000 MG/M2, CYCLIC (24 H IV INFUSION ON DAYS 1 AND 8 EVERY 3 WEEKS)
     Route: 041

REACTIONS (2)
  - Diarrhoea [Unknown]
  - Neutropenia [Unknown]
